FAERS Safety Report 15433563 (Version 1)
Quarter: 2018Q3

REPORT INFORMATION
  Report Type: Spontaneous
  Country: US (occurrence: US)
  Receive Date: 20180921
  Receipt Date: 20180921
  Transmission Date: 20181010
  Serious: No
  Sender: FDA-Public Use
  Company Number: None

PATIENT
  Sex: Female
  Weight: 83.6 kg

DRUGS (1)
  1. ATEZOLIZUMAB. [Suspect]
     Active Substance: ATEZOLIZUMAB
     Indication: NON-SMALL CELL LUNG CANCER STAGE IIIB
     Route: 042
     Dates: start: 20170912, end: 20170912

REACTIONS (7)
  - Respiratory failure [None]
  - Oedema [None]
  - Brain natriuretic peptide increased [None]
  - Cardiomyopathy [None]
  - Ejection fraction decreased [None]
  - Sepsis [None]
  - Bacterial infection [None]
